FAERS Safety Report 9640410 (Version 1)
Quarter: 2013Q4

REPORT INFORMATION
  Report Type: Spontaneous
  Country: US (occurrence: None)
  Receive Date: 20131021
  Receipt Date: 20131021
  Transmission Date: 20140711
  Serious: Yes (Life-Threatening, Hospitalization)
  Sender: FDA-Public Use
  Company Number: AUR-APL-2013-08675

PATIENT
  Age: 14 Year
  Sex: Female
  Weight: 61.1 kg

DRUGS (4)
  1. CITALOPRAM (CITALOPRAM) [Suspect]
     Indication: PRODUCT USED FOR UNKNOWN INDICATION
     Dates: start: 20130710
  2. IBUPROFEN (IBUPROFEN) [Suspect]
     Indication: PRODUCT USED FOR UNKNOWN INDICATION
     Dates: start: 20130710
  3. DICYCLOMINE (DICYCLOVERINE) [Suspect]
     Indication: PRODUCT USED FOR UNKNOWN INDICATION
  4. PENTASA (MESALAZINE) [Suspect]
     Indication: PRODUCT USED FOR UNKNOWN INDICATION
     Dates: start: 20130710

REACTIONS (3)
  - Vomiting [None]
  - Overdose [None]
  - Suicide attempt [None]
